FAERS Safety Report 6123463-2 (Version None)
Quarter: 2009Q1

REPORT INFORMATION
  Report Type: 
  Country: None (occurrence: None)
  Receive Date: 20090318
  Receipt Date: 20090313
  Transmission Date: 20090719
  Serious: No
  Sender: FDA-Public Use
  Company Number: US-B.I. PHARMACEUTICALS,INC./RIDGEFIELD-2009-BP-03177BP

PATIENT
  Sex: Male

DRUGS (4)
  1. FLOMAX [Suspect]
     Indication: BENIGN PROSTATIC HYPERPLASIA
     Dosage: .4MG
     Route: 048
     Dates: start: 20081101
  2. B/P MED [Concomitant]
     Indication: BLOOD PRESSURE INCREASED
  3. INSULIN [Concomitant]
     Indication: DIABETES MELLITUS
  4. CHOLESTEROL MED [Concomitant]
     Indication: BLOOD CHOLESTEROL INCREASED

REACTIONS (3)
  - MEDICATION ERROR [None]
  - NOCTURIA [None]
  - RESIDUAL URINE [None]
